FAERS Safety Report 6443545-5 (Version None)
Quarter: 2009Q4

REPORT INFORMATION
  Report Type: 
  Country: None (occurrence: None)
  Receive Date: 20091117
  Receipt Date: 20091112
  Transmission Date: 20100525
  Serious: No
  Sender: FDA-Public Use
  Company Number: US-ROXANE LABORATORIES, INC.-2009-RO-01164RO

PATIENT
  Sex: Female

DRUGS (2)
  1. FLUTICASONE [Suspect]
     Indication: SEASONAL ALLERGY
     Route: 045
     Dates: start: 20091026
  2. ALLEGRA [Concomitant]
     Indication: SEASONAL ALLERGY

REACTIONS (6)
  - DRUG INEFFECTIVE [None]
  - INCREASED UPPER AIRWAY SECRETION [None]
  - LIQUID PRODUCT PHYSICAL ISSUE [None]
  - MALAISE [None]
  - SINUS DISORDER [None]
  - SINUSITIS [None]
